FAERS Safety Report 4558681-8 (Version None)
Quarter: 2005Q1

REPORT INFORMATION
  Report Type: 
  Country: None (occurrence: None)
  Receive Date: 20050121
  Receipt Date: 20050121
  Transmission Date: 20050727
  Serious: No
  Sender: FDA-Public Use
  Company Number: None

PATIENT
  Age: 52 Year
  Sex: Female
  Weight: 51.3472 kg

DRUGS (5)
  1. ELOXATIN [Suspect]
     Indication: COLON CANCER METASTATIC
     Dosage: 110 MG IV Q 14 DAYS
     Route: 042
     Dates: start: 20040512, end: 20041207
  2. ELOXATIN [Suspect]
     Dates: start: 20040512, end: 20041207
  3. AVASTIN [Concomitant]
  4. LEUCOVORIN [Concomitant]
  5. SANDOSTATIN [Concomitant]

REACTIONS (8)
  - ERYTHEMA [None]
  - FLUSHING [None]
  - INFUSION RELATED REACTION [None]
  - OEDEMA PERIPHERAL [None]
  - PERIORBITAL OEDEMA [None]
  - PRURITUS [None]
  - RASH [None]
  - THROAT IRRITATION [None]
